FAERS Safety Report 5780865-1 (Version None)
Quarter: 2008Q2

REPORT INFORMATION
  Report Type: 
  Country: None (occurrence: None)
  Receive Date: 20080618
  Receipt Date: 20080605
  Transmission Date: 20081010
  Serious: Yes (Death)
  Sender: FDA-Public Use
  Company Number: 2008AL004939

PATIENT
  Age: 86 Year
  Sex: Male
  Weight: 53.0709 kg

DRUGS (2)
  1. DIGOXIN [Suspect]
  2. COUMADIN [Concomitant]

REACTIONS (2)
  - ATRIAL FIBRILLATION [None]
  - CEREBROVASCULAR ACCIDENT [None]
